FAERS Safety Report 11378573 (Version 1)
Quarter: 2015Q3

REPORT INFORMATION
  Report Type: Spontaneous
  Country: US (occurrence: None)
  Receive Date: 20150812
  Receipt Date: 20150812
  Transmission Date: 20151125
  Serious: Yes (Other)
  Sender: FDA-Public Use
  Company Number: DEP_03267_2015

PATIENT
  Sex: Female

DRUGS (4)
  1. MORPHINE IR [Concomitant]
     Active Substance: MORPHINE
  2. MORPHINE SULFATE EXTENDED-RELEASE [Concomitant]
     Active Substance: MORPHINE SULFATE
  3. GRALISE [Suspect]
     Active Substance: GABAPENTIN
     Indication: OFF LABEL USE
     Dosage: SAMPLE PACK, TITRATED UP TO 900 MG DAILY), (DECREASED FROM 900 MG DAILY TO 600 MG), (DF)
     Dates: start: 20150722, end: 201507
  4. GRALISE [Suspect]
     Active Substance: GABAPENTIN
     Indication: PAIN
     Dosage: SAMPLE PACK, TITRATED UP TO 900 MG DAILY), (DECREASED FROM 900 MG DAILY TO 600 MG), (DF)
     Dates: start: 20150722, end: 201507

REACTIONS (8)
  - Sinusitis [None]
  - Intervertebral disc protrusion [None]
  - Nerve compression [None]
  - Musculoskeletal disorder [None]
  - Dizziness [None]
  - Sedation [None]
  - Dyspnoea [None]
  - Migraine [None]

NARRATIVE: CASE EVENT DATE: 201507
